FAERS Safety Report 4848786-6 (Version None)
Quarter: 2005Q4

REPORT INFORMATION
  Report Type: 
  Country: None (occurrence: None)
  Receive Date: 20051206
  Receipt Date: 20051128
  Transmission Date: 20060501
  Serious: Yes (Death, Hospitalization)
  Sender: FDA-Public Use
  Company Number: GXKR2005GB02053

PATIENT
  Age: 81 Year
  Sex: Female

DRUGS (7)
  1. ASPIRIN [Suspect]
     Indication: CEREBROVASCULAR ACCIDENT
     Dosage: 75 MG, ORAL
     Route: 048
     Dates: start: 20020107, end: 20051002
  2. ARTHROTEC [Suspect]
     Indication: PAIN
     Dosage: 1 TABLET BID, ORAL
     Route: 048
     Dates: start: 20021107, end: 20051002
  3. DOXAZOSIN (DOXAZOSIN) [Concomitant]
  4. LACTULOSE [Concomitant]
  5. LISINOPRIL [Concomitant]
  6. PARACETAMOL (PARACETAMOL) [Concomitant]
  7. SALAMOL   (SALBUTAMOL SULFATE) [Concomitant]

REACTIONS (2)
  - DUODENAL ULCER [None]
  - GASTROINTESTINAL HAEMORRHAGE [None]
